FAERS Safety Report 25573425 (Version 1)
Quarter: 2025Q3

REPORT INFORMATION
  Report Type: Spontaneous
  Country: US (occurrence: US)
  Receive Date: 20250717
  Receipt Date: 20250717
  Transmission Date: 20251021
  Serious: Yes (Life-Threatening, Hospitalization)
  Sender: MYLAN
  Company Number: US-MYLANLABS-2025M1058528

PATIENT
  Age: 8 Week
  Sex: Male

DRUGS (4)
  1. SILDENAFIL [Suspect]
     Active Substance: SILDENAFIL
     Indication: Right ventricular hypertension
  2. BIVALIRUDIN [Suspect]
     Active Substance: BIVALIRUDIN
     Indication: Thrombosis prophylaxis
  3. TREPROSTINIL [Suspect]
     Active Substance: TREPROSTINIL
     Indication: Right ventricular hypertension
  4. NITRIC OXIDE [Concomitant]
     Active Substance: NITRIC OXIDE
     Indication: Product used for unknown indication

REACTIONS (2)
  - Drug ineffective [Unknown]
  - Off label use [Unknown]
